FAERS Safety Report 10168021 (Version 1)
Quarter: 2014Q2

REPORT INFORMATION
  Report Type: Spontaneous
  Country: CA (occurrence: CA)
  Receive Date: 20140512
  Receipt Date: 20140512
  Transmission Date: 20141212
  Serious: Yes (Life-Threatening)
  Sender: FDA-Public Use
  Company Number: CHPA2014CA006362

PATIENT
  Sex: 0

DRUGS (2)
  1. OTRIVIN UNKNOWN [Suspect]
     Route: 045
  2. TYLENOL [Concomitant]
     Route: 065

REACTIONS (2)
  - Feeling abnormal [Unknown]
  - Malaise [Unknown]
